FAERS Safety Report 15955484 (Version 2)
Quarter: 2019Q3

REPORT INFORMATION
  Report Type: Spontaneous
  Country: GB (occurrence: GB)
  Receive Date: 20190213
  Receipt Date: 20190726
  Transmission Date: 20191004
  Serious: Yes (Hospitalization)
  Sender: FDA-Public Use
  Company Number: GB-VISTAPHARM, INC.-VER201902-000049

PATIENT
  Age: 60 Year
  Sex: Male

DRUGS (4)
  1. PHENOBARBITAL. [Concomitant]
     Active Substance: PHENOBARBITAL
     Indication: SEIZURE
     Dosage: UNKNOWN
     Route: 048
  2. PHENYTOIN. [Suspect]
     Active Substance: PHENYTOIN
     Indication: SEIZURE
     Dosage: UNKNOWN
     Route: 048
  3. PHENOBARBITAL. [Concomitant]
     Active Substance: PHENOBARBITAL
     Dosage: UNKNOWN
     Route: 042
  4. PHENYTOIN. [Suspect]
     Active Substance: PHENYTOIN
     Dosage: UNKNOWN
     Route: 042

REACTIONS (6)
  - Hypothermia [Recovered/Resolved]
  - Toxicity to various agents [Recovered/Resolved]
  - Abnormal behaviour [Unknown]
  - Generalised tonic-clonic seizure [Recovered/Resolved]
  - Nystagmus [Unknown]
  - Coordination abnormal [Unknown]
